FAERS Safety Report 9514691 (Version 1)
Quarter: 2013Q3

REPORT INFORMATION
  Report Type: Spontaneous
  Country: US (occurrence: US)
  Receive Date: 20130911
  Receipt Date: 20130911
  Transmission Date: 20140515
  Serious: No
  Sender: FDA-Public Use
  Company Number: US-009507513-1308USA014032

PATIENT
  Sex: Female

DRUGS (1)
  1. ASMANEX TWISTHALER [Suspect]
     Indication: ASTHMA
     Dosage: 1 PUFF ONCE A DAY
     Route: 055
     Dates: start: 201301

REACTIONS (6)
  - Nasal congestion [Recovered/Resolved]
  - Drug dose omission [Unknown]
  - Dyspnoea [Recovered/Resolved]
  - Accidental exposure to product [Unknown]
  - Product container issue [Unknown]
  - Product packaging issue [Unknown]
